FAERS Safety Report 5319045-2 (Version None)
Quarter: 2007Q2

REPORT INFORMATION
  Report Type: 
  Country: None (occurrence: None)
  Receive Date: 20070501
  Receipt Date: 20070418
  Transmission Date: 20071010
  Serious: Yes (Hospitalization)
  Sender: FDA-Public Use
  Company Number: 2007317134

PATIENT
  Age: 40 Year
  Sex: Female
  Weight: 68 kg

DRUGS (3)
  1. MINOXIDIL [Suspect]
     Indication: ALOPECIA
     Dosage: UNSPECIFIED AMOUNT ONCE DAILY (1 IN 1 D), TOPICAL
     Route: 061
  2. ROGAINE 5 [Suspect]
     Indication: ALOPECIA
     Dosage: HALF A CAP ONCE A DAY (1 IN 1 D), TOPICAL
     Route: 061
     Dates: start: 20070401
  3. VITAMINS [Concomitant]

REACTIONS (6)
  - CHEST DISCOMFORT [None]
  - CHEST PAIN [None]
  - DIZZINESS [None]
  - HEART RATE INCREASED [None]
  - SENSATION OF FOREIGN BODY [None]
  - SYNCOPE [None]
